FAERS Safety Report 7830572-6 (Version None)
Quarter: 2011Q4

REPORT INFORMATION
  Report Type: 
  Country: None (occurrence: None)
  Receive Date: 20111021
  Receipt Date: 20111017
  Transmission Date: 20120403
  Serious: Yes (Other)
  Sender: FDA-Public Use
  Company Number: JP-PFIZER INC-2011249062

PATIENT
  Age: 52 Year
  Sex: Female

DRUGS (4)
  1. METHYCOBAL [Concomitant]
     Dosage: UNK
  2. LOXONIN [Concomitant]
     Dosage: UNK
  3. LYRICA [Suspect]
     Dosage: 75 MG DAILY
     Dates: start: 20110829
  4. DEPAS [Concomitant]
     Dosage: UNK

REACTIONS (2)
  - COGNITIVE DISORDER [None]
  - VISION BLURRED [None]
